FAERS Safety Report 12722610 (Version 1)
Quarter: 2016Q3

REPORT INFORMATION
  Report Type: Spontaneous
  Country: ZA (occurrence: ZA)
  Receive Date: 20160907
  Receipt Date: 20160907
  Transmission Date: 20161109
  Serious: Yes (Other)
  Sender: FDA-Public Use
  Company Number: ZA-ASTRAZENECA-2016SE93952

PATIENT

DRUGS (1)
  1. NEXIAM [Suspect]
     Active Substance: ESOMEPRAZOLE
     Indication: GASTROOESOPHAGEAL REFLUX DISEASE
     Dosage: 40MG AND STEPPED DOWN TO 20MG
     Route: 048

REACTIONS (1)
  - Neoplasm malignant [Unknown]
